FAERS Safety Report 4447952-1 (Version None)
Quarter: 2004Q3

REPORT INFORMATION
  Report Type: 
  Country: None (occurrence: None)
  Receive Date: 20040909
  Receipt Date: 20040909
  Transmission Date: 20050211
  Serious: Yes (Life-Threatening)
  Sender: FDA-Public Use
  Company Number: None

PATIENT
  Sex: Female
  Weight: 54.4316 kg

DRUGS (1)
  1. LORAZEPAM [Suspect]
     Indication: PANIC DISORDER WITH AGORAPHOBIA
     Dosage: 1 MG

REACTIONS (3)
  - EPISTAXIS [None]
  - HYPERVENTILATION [None]
  - PHARMACEUTICAL PRODUCT COMPLAINT [None]
